FAERS Safety Report 16813393 (Version 1)
Quarter: 2019Q3

REPORT INFORMATION
  Report Type: Spontaneous
  Country: ES (occurrence: ES)
  Receive Date: 20190917
  Receipt Date: 20190917
  Transmission Date: 20191005
  Serious: No
  Sender: FDA-Public Use
  Company Number: ES-ALKEM LABORATORIES LIMITED-ES-ALKEM-2019-07079

PATIENT
  Age: 25 Year
  Sex: Female

DRUGS (7)
  1. ARIPIPRAZOLE. [Suspect]
     Active Substance: ARIPIPRAZOLE
     Indication: DYSTONIA
     Dosage: 30 MILLIGRAM, QD
     Route: 065
  2. QUETIAPINE FUMARATE. [Suspect]
     Active Substance: QUETIAPINE FUMARATE
     Indication: PSYCHOTIC DISORDER
     Dosage: UNK
     Route: 065
  3. CLOZAPINE. [Suspect]
     Active Substance: CLOZAPINE
     Indication: SCHIZOPHRENIA
     Dosage: 250 MILLIGRAM, QD
     Route: 065
  4. AMISULPRIDE [Suspect]
     Active Substance: AMISULPRIDE
     Indication: PSYCHOTIC DISORDER
     Dosage: UNK
     Route: 065
  5. ARIPIPRAZOLE. [Suspect]
     Active Substance: ARIPIPRAZOLE
     Indication: PSYCHOTIC DISORDER
     Dosage: 10 MILLIGRAM, QD
     Route: 065
  6. OLANZAPINE. [Suspect]
     Active Substance: OLANZAPINE
     Indication: PSYCHOTIC DISORDER
     Dosage: UNK
     Route: 065
  7. HALOPERIDOL. [Suspect]
     Active Substance: HALOPERIDOL
     Indication: SCHIZOPHRENIA
     Dosage: 4 MILLIGRAM, QD
     Route: 065

REACTIONS (4)
  - Somnolence [Unknown]
  - Exposure during pregnancy [Unknown]
  - Drug tolerance decreased [Unknown]
  - Sedation [Unknown]
